FAERS Safety Report 5243871-1 (Version None)
Quarter: 2007Q1

REPORT INFORMATION
  Report Type: 
  Country: None (occurrence: None)
  Receive Date: 20070220
  Receipt Date: 20070220
  Transmission Date: 20070707
  Serious: Yes (Other)
  Sender: FDA-Public Use
  Company Number: None

PATIENT
  Age: 49 Year
  Sex: Female
  Weight: 123.3784 kg

DRUGS (7)
  1. PROTONIX [Suspect]
     Indication: GASTRIC DISORDER
     Dosage: 1 TABLET DAILY PO
     Route: 048
     Dates: start: 20070129, end: 20070212
  2. PROTONIX [Suspect]
     Indication: PROPHYLAXIS
     Dosage: 1 TABLET DAILY PO
     Route: 048
     Dates: start: 20070129, end: 20070212
  3. RITALIN [Concomitant]
  4. IMIPRIMINE [Concomitant]
  5. WELLBUTRIN [Concomitant]
  6. NEURONTIN [Concomitant]
  7. RISPERDAL [Concomitant]

REACTIONS (3)
  - DRUG EFFECT DECREASED [None]
  - RASH PRURITIC [None]
  - SCAB [None]
